FAERS Safety Report 8303871-1 (Version None)
Quarter: 2012Q2

REPORT INFORMATION
  Report Type: 
  Country: None (occurrence: None)
  Receive Date: 20120423
  Receipt Date: 20120413
  Transmission Date: 20120825
  Serious: Yes (Life-Threatening, Hospitalization, Other)
  Sender: FDA-Public Use
  Company Number: FR-GENZYME-THYM-1003144

PATIENT
  Sex: Female
  Weight: 62 kg

DRUGS (2)
  1. THYMOGLOBULIN [Suspect]
     Indication: PROPHYLAXIS AGAINST TRANSPLANT REJECTION
     Dosage: 11 VIALS AT 25 MG, UNK
     Route: 042
     Dates: start: 20120114, end: 20120120
  2. SOLU-MEDROL [Concomitant]
     Indication: PROPHYLAXIS
     Dosage: UNK MG, QD
     Route: 065
     Dates: start: 20120114, end: 20120127

REACTIONS (2)
  - DRUG INEFFECTIVE [None]
  - TRANSPLANT REJECTION [None]
